FAERS Safety Report 8289553-3 (Version None)
Quarter: 2012Q2

REPORT INFORMATION
  Report Type: 
  Country: None (occurrence: None)
  Receive Date: 20120417
  Receipt Date: 20120411
  Transmission Date: 20120825
  Serious: Yes (Other)
  Sender: FDA-Public Use
  Company Number: CA-BRISTOL-MYERS SQUIBB COMPANY-15056468

PATIENT
  Age: 33 Year
  Sex: Female

DRUGS (18)
  1. IRON [Concomitant]
  2. RABEPRAZOLE SODIUM [Concomitant]
  3. ADVAIR DISKUS 100/50 [Concomitant]
  4. METHOTREXATE [Concomitant]
  5. NASONEX [Concomitant]
  6. FOLIC ACID [Concomitant]
  7. VITAMIN B-12 [Concomitant]
     Dosage: INJECTION
  8. CALCIUM CARBONATE [Concomitant]
  9. ORENCIA [Suspect]
     Indication: RHEUMATOID ARTHRITIS
     Dosage: LAST DOSE ON 07-APR-2010;5MAY10(1000 MG),18JAN11,06JAN2012,09MAR12 INF:28,EXP:MA2014
     Route: 042
     Dates: start: 20100212
  10. METFORMIN HCL [Concomitant]
  11. TYLENOL W/ CODEINE NO. 3 [Concomitant]
  12. ZINC SULFATE [Concomitant]
  13. VENTOLIN [Concomitant]
  14. NORTRIPTYLINE HCL [Concomitant]
  15. CELEBREX [Concomitant]
  16. FOSAMAX [Concomitant]
  17. AVIANE-28 [Concomitant]
  18. ASCORBIC ACID [Concomitant]

REACTIONS (5)
  - ASTHMA [None]
  - LOWER RESPIRATORY TRACT INFECTION [None]
  - PNEUMONIA [None]
  - FATIGUE [None]
  - PYREXIA [None]
